FAERS Safety Report 5042890-8 (Version None)
Quarter: 2006Q3

REPORT INFORMATION
  Report Type: 
  Country: None (occurrence: None)
  Receive Date: 20060705
  Receipt Date: 20060524
  Transmission Date: 20061208
  Serious: Yes (Hospitalization)
  Sender: FDA-Public Use
  Company Number: DE-GLAXOSMITHKLINE-D0049846A

PATIENT
  Age: 7 Year
  Sex: Female
  Weight: 21.4 kg

DRUGS (1)
  1. VIANI [Suspect]
     Route: 065
     Dates: start: 20060124, end: 20060523

REACTIONS (3)
  - MUSCLE SPASMS [None]
  - MUSCULAR WEAKNESS [None]
  - TREMOR [None]
